FAERS Safety Report 9240931 (Version 1)
Quarter: 2013Q2

REPORT INFORMATION
  Report Type: Spontaneous
  Country: US (occurrence: None)
  Receive Date: 20130418
  Receipt Date: 20130418
  Transmission Date: 20140414
  Serious: No
  Sender: FDA-Public Use
  Company Number: None

PATIENT
  Sex: Female
  Weight: 97.07 kg

DRUGS (4)
  1. LANSOPRAZOLE [Suspect]
     Indication: GASTROOESOPHAGEAL REFLUX DISEASE
  2. GEN. PREVACID [Concomitant]
  3. OMEPRAZOLE [Concomitant]
  4. PANTOPRAZOLE [Concomitant]

REACTIONS (1)
  - Drug ineffective [None]
